FAERS Safety Report 24614529 (Version 2)
Quarter: 2024Q4

REPORT INFORMATION
  Report Type: Spontaneous
  Country: FR (occurrence: FR)
  Receive Date: 20241113
  Receipt Date: 20241115
  Transmission Date: 20250115
  Serious: Yes (Hospitalization, Other)
  Sender: MERCK
  Company Number: None

PATIENT
  Age: 50 Year
  Sex: Male
  Weight: 108 kg

DRUGS (7)
  1. DAPTOMYCIN [Suspect]
     Active Substance: DAPTOMYCIN
     Indication: Endocarditis
     Dosage: 1000 MILLIGRAM, QD
     Route: 042
     Dates: start: 20240828, end: 20241011
  2. CEFTAROLINE FOSAMIL [Suspect]
     Active Substance: CEFTAROLINE FOSAMIL
     Indication: Endocarditis
     Dosage: 600 MILLIGRAM, Q12H
     Route: 042
     Dates: start: 20240828, end: 20241011
  3. APIXABAN [Concomitant]
     Active Substance: APIXABAN
  4. DAPAGLIFLOZIN [Concomitant]
     Active Substance: DAPAGLIFLOZIN
  5. FUROSEMIDE [Concomitant]
     Active Substance: FUROSEMIDE
  6. RAMIPRIL [Concomitant]
     Active Substance: RAMIPRIL
  7. SPIRONOLACTONE [Concomitant]
     Active Substance: SPIRONOLACTONE

REACTIONS (2)
  - Agranulocytosis [Recovered/Resolved]
  - Eosinophilia [Not Recovered/Not Resolved]

NARRATIVE: CASE EVENT DATE: 20241014
